FAERS Safety Report 23315737 (Version 1)
Quarter: 2023Q4

REPORT INFORMATION
  Report Type: Spontaneous
  Country: US (occurrence: US)
  Receive Date: 20231219
  Receipt Date: 20231219
  Transmission Date: 20240110
  Serious: No
  Sender: FDA-Public Use
  Company Number: US-BAYER-2023A180727

PATIENT
  Age: 6 Year
  Sex: Male

DRUGS (4)
  1. KOVALTRY [Suspect]
     Active Substance: ANTIHEMOPHILIC FACTOR, HUMAN RECOMBINANT
     Indication: Factor VIII deficiency
     Dosage: 750 IU  EVERY 24 HOURS AS NEEDED FOR EXCESS BLEEDING
     Route: 042
  2. IRON [Concomitant]
     Active Substance: IRON
  3. ASCORBIC ACID [Concomitant]
     Active Substance: ASCORBIC ACID
  4. AMICAR [Concomitant]
     Active Substance: AMINOCAPROIC ACID

REACTIONS (1)
  - Epistaxis [Not Recovered/Not Resolved]
